FAERS Safety Report 7907030-3 (Version None)
Quarter: 2011Q4

REPORT INFORMATION
  Report Type: 
  Country: None (occurrence: None)
  Receive Date: 20111110
  Receipt Date: 20111104
  Transmission Date: 20120403
  Serious: Yes (Hospitalization, Other)
  Sender: FDA-Public Use
  Company Number: US-MERCK-1007USA00214

PATIENT
  Age: 59 Year
  Sex: Female
  Weight: 55 kg

DRUGS (9)
  1. FOSAMAX [Suspect]
     Indication: OSTEOPOROSIS
     Route: 048
     Dates: start: 19971101, end: 20070301
  2. FOSAMAX [Suspect]
     Route: 048
     Dates: start: 20020925
  3. ASPIRIN [Concomitant]
     Route: 065
     Dates: start: 20020101, end: 20110101
  4. FOSAMAX [Suspect]
     Indication: OSTEOPENIA
     Route: 048
     Dates: start: 19971101, end: 20070301
  5. FOSAMAX [Suspect]
     Route: 048
     Dates: start: 20020925
  6. FOSAMAX [Suspect]
     Route: 048
  7. FOSAMAX [Suspect]
     Route: 048
  8. CALCIUM (UNSPECIFIED) [Concomitant]
     Route: 065
     Dates: start: 19970101
  9. LOVAZA [Concomitant]
     Route: 065
     Dates: start: 20040101

REACTIONS (45)
  - UTERINE DISORDER [None]
  - ADVERSE DRUG REACTION [None]
  - INAPPROPRIATE SCHEDULE OF DRUG ADMINISTRATION [None]
  - URINARY INCONTINENCE [None]
  - MUSCLE ATROPHY [None]
  - CARDIAC DISORDER [None]
  - OESTROGEN DEFICIENCY [None]
  - MENOPAUSAL SYMPTOMS [None]
  - ABDOMINAL PAIN [None]
  - DIARRHOEA [None]
  - URETHRAL CARUNCLE [None]
  - SEASONAL ALLERGY [None]
  - HAEMATURIA [None]
  - VAGINAL HAEMORRHAGE [None]
  - GASTRIC DISORDER [None]
  - CHEST PAIN [None]
  - FEMUR FRACTURE [None]
  - OSTEOARTHRITIS [None]
  - BLOOD CHOLESTEROL INCREASED [None]
  - ECZEMA [None]
  - PAIN IN EXTREMITY [None]
  - MENISCUS LESION [None]
  - SPONDYLOLISTHESIS [None]
  - HEPATIC STEATOSIS [None]
  - WEIGHT DECREASED [None]
  - URINARY TRACT INFECTION [None]
  - BURSITIS [None]
  - OESOPHAGITIS [None]
  - CYST [None]
  - BACK PAIN [None]
  - BUNION [None]
  - ANXIETY [None]
  - HYPOTHYROIDISM [None]
  - PALPITATIONS [None]
  - GASTROOESOPHAGEAL REFLUX DISEASE [None]
  - TACHYARRHYTHMIA [None]
  - AORTIC ARTERIOSCLEROSIS [None]
  - CARDIAC MURMUR [None]
  - HOT FLUSH [None]
  - ARTHRITIS [None]
  - TENDON DISORDER [None]
  - SCIATICA [None]
  - OEDEMA [None]
  - ARTHROPOD BITE [None]
  - ARTERIOSCLEROSIS [None]
